FAERS Safety Report 7358093-8 (Version None)
Quarter: 2011Q1

REPORT INFORMATION
  Report Type: 
  Country: None (occurrence: None)
  Receive Date: 20110317
  Receipt Date: 20110314
  Transmission Date: 20110831
  Serious: Yes (Death, Hospitalization, Other)
  Sender: FDA-Public Use
  Company Number: PHHY2010IE52427

PATIENT
  Sex: Female

DRUGS (3)
  1. CO-DIOVAN [Suspect]
     Indication: BLOOD PRESSURE INCREASED
     Dosage: 160 VALS AND 12.5 HYDR
  2. ONE-ALPHA [Concomitant]
  3. IDEOS [Concomitant]
     Indication: VITAMIN D

REACTIONS (16)
  - ASTHENIA [None]
  - PLATELET DISORDER [None]
  - DECREASED APPETITE [None]
  - HYPONATRAEMIA [None]
  - ATELECTASIS [None]
  - RESPIRATORY FAILURE [None]
  - BLOOD CHLORIDE DECREASED [None]
  - KYPHOSCOLIOSIS [None]
  - HYPERTENSION [None]
  - LETHARGY [None]
  - BLOOD CREATININE INCREASED [None]
  - HYPOTENSION [None]
  - INAPPROPRIATE ANTIDIURETIC HORMONE SECRETION [None]
  - VOCAL CORD PARALYSIS [None]
  - WHITE BLOOD CELL COUNT INCREASED [None]
  - NEUTROPHIL COUNT INCREASED [None]
